FAERS Safety Report 5913986-0 (Version None)
Quarter: 2008Q4

REPORT INFORMATION
  Report Type: 
  Country: None (occurrence: None)
  Receive Date: 20081009
  Receipt Date: 20080930
  Transmission Date: 20090506
  Serious: Yes (Hospitalization)
  Sender: FDA-Public Use
  Company Number: US-BAXTER-2008BH008900

PATIENT
  Age: 75 Year
  Sex: Female

DRUGS (14)
  1. DIANEAL [Suspect]
     Indication: PERITONEAL DIALYSIS
     Route: 033
     Dates: start: 20070403
  2. DIANEAL [Suspect]
     Indication: RENAL DISORDER
     Route: 033
     Dates: start: 20070403
  3. DIANEAL [Suspect]
     Indication: HYPERTENSION
     Route: 033
     Dates: start: 20070403
  4. AMBIEN [Concomitant]
     Indication: DRUG USE FOR UNKNOWN INDICATION
     Dosage: DOSE UNIT:UNKNOWN
     Route: 065
  5. ARANESP [Concomitant]
     Indication: DRUG USE FOR UNKNOWN INDICATION
     Dosage: DOSE UNIT:UNKNOWN
     Route: 065
  6. ASPIRIN [Concomitant]
     Indication: DRUG USE FOR UNKNOWN INDICATION
     Dosage: DOSE UNIT:UNKNOWN
     Route: 065
  7. VITAMIN CAP [Concomitant]
     Indication: DRUG USE FOR UNKNOWN INDICATION
     Dosage: DOSE UNIT:UNKNOWN
     Route: 065
  8. COLACE [Concomitant]
     Indication: DRUG USE FOR UNKNOWN INDICATION
     Dosage: DOSE UNIT:UNKNOWN
     Route: 065
  9. METOPROLOL TARTRATE [Concomitant]
     Indication: DRUG USE FOR UNKNOWN INDICATION
     Dosage: DOSE UNIT:UNKNOWN
     Route: 065
  10. PROGRAF [Concomitant]
     Indication: DRUG USE FOR UNKNOWN INDICATION
     Dosage: DOSE UNIT:UNKNOWN
     Route: 065
  11. PROTONIX [Concomitant]
     Indication: DRUG USE FOR UNKNOWN INDICATION
     Dosage: DOSE UNIT:UNKNOWN
     Route: 065
  12. TUMS [Concomitant]
     Indication: DRUG USE FOR UNKNOWN INDICATION
     Dosage: DOSE UNIT:UNKNOWN
     Route: 065
  13. ZINC [Concomitant]
     Indication: DRUG USE FOR UNKNOWN INDICATION
     Dosage: DOSE UNIT:UNKNOWN
     Route: 065
  14. RENAGEL [Concomitant]
     Indication: DRUG USE FOR UNKNOWN INDICATION
     Dosage: DOSE UNIT:UNKNOWN
     Route: 065

REACTIONS (2)
  - IMPAIRED HEALING [None]
  - PERIPHERAL VASCULAR DISORDER [None]
